FAERS Safety Report 13092007 (Version 1)
Quarter: 2017Q1

REPORT INFORMATION
  Report Type: Spontaneous
  Country: US (occurrence: US)
  Receive Date: 20170105
  Receipt Date: 20170105
  Transmission Date: 20170428
  Serious: Yes (Hospitalization)
  Sender: FDA-Public Use
  Company Number: None

PATIENT
  Age: 78 Year
  Sex: Female

DRUGS (1)
  1. REVLIMID [Suspect]
     Active Substance: LENALIDOMIDE
     Indication: PLASMA CELL MYELOMA
     Route: 048
     Dates: start: 20161205

REACTIONS (5)
  - Pathological fracture [None]
  - Sepsis [None]
  - Femur fracture [None]
  - Urinary tract infection [None]
  - Mental status changes [None]

NARRATIVE: CASE EVENT DATE: 20161202
